FAERS Safety Report 9620807 (Version 3)
Quarter: 2013Q4

REPORT INFORMATION
  Report Type: Spontaneous
  Country: IT (occurrence: IT)
  Receive Date: 20131015
  Receipt Date: 20131022
  Transmission Date: 20140711
  Serious: Yes (Other)
  Sender: FDA-Public Use
  Company Number: IT-RANBAXY-2013RR-74044

PATIENT
  Age: 47 Year
  Sex: Male

DRUGS (4)
  1. LORAZEPAM [Suspect]
     Indication: DRUG ABUSE
     Dosage: 40 MG
     Route: 048
     Dates: start: 20130925, end: 20130925
  2. TRITTICO 50 MG FILM-COATED TABLET [Suspect]
     Indication: DRUG ABUSE
     Dosage: 750 MG DAILY
     Route: 048
     Dates: start: 20130925, end: 20130925
  3. TRITTICO 25MG/ML ORAL DROPS [Suspect]
     Indication: DRUG ABUSE
     Dosage: 750 MG, COMPLETE
     Route: 048
     Dates: start: 20130925, end: 20130925
  4. VATRAN [Suspect]
     Indication: DRUG ABUSE
     Dosage: 50 MG, COMPLETE
     Route: 048
     Dates: start: 20130925, end: 20130925

REACTIONS (2)
  - Psychomotor retardation [Recovering/Resolving]
  - Somnolence [Recovering/Resolving]
